FAERS Safety Report 4526331-2 (Version None)
Quarter: 2004Q4

REPORT INFORMATION
  Report Type: 
  Country: None (occurrence: None)
  Receive Date: 20041210
  Receipt Date: 20041125
  Transmission Date: 20050328
  Serious: Yes (Other)
  Sender: FDA-Public Use
  Company Number: 2004242928DE

PATIENT
  Sex: Male
  Weight: 138 kg

DRUGS (14)
  1. LINEZOLID SOLUTION, STERILE (LINEZOLID) [Suspect]
     Indication: STAPHYLOCOCCAL INFECTION
     Dosage: 1200 MG (600 MG, BID), INTRAVENOUS
     Route: 042
     Dates: start: 20040930, end: 20041005
  2. MULTIBIONTA (ASCORBIC ACID, CALCIUM PANTOTHENATE, CYANOCOBALAMIN, NICO [Concomitant]
  3. SELENIUM (SELENIUM) [Concomitant]
  4. ZINC DL-ASPARTATE (ZINC DL-ASPARTATE) [Concomitant]
  5. TOCOPHEROL CONCENTRATE CAP [Concomitant]
  6. ACETYLCYSTEINE [Concomitant]
  7. DIMETICONE, ACTIVATED (SIMETICONE) [Concomitant]
  8. IBUPROFEN [Concomitant]
  9. PANTOPRAZOLE SODIUM [Concomitant]
  10. HEPARIN-FRACTION, SODIUM SALT (HEPARIN-FRACTION, SODIUM SALT) [Concomitant]
  11. NYSTATIN [Concomitant]
  12. ASCORBIC ACID [Concomitant]
  13. INSULIN [Concomitant]
  14. PIRITRAMIDE (PIRITRAMIDE) [Concomitant]

REACTIONS (4)
  - ARRHYTHMIA [None]
  - ATRIOVENTRICULAR BLOCK [None]
  - CARDIAC ARREST [None]
  - TACHYCARDIA [None]
